FAERS Safety Report 4346064-5 (Version None)
Quarter: 2004Q2

REPORT INFORMATION
  Report Type: 
  Country: None (occurrence: None)
  Receive Date: 20040426
  Receipt Date: 20040419
  Transmission Date: 20050107
  Serious: Yes (Life-Threatening, Hospitalization)
  Sender: FDA-Public Use
  Company Number: SI-BRISTOL-MYERS SQUIBB COMPANY-12565990

PATIENT
  Age: 20 Year
  Sex: Female

DRUGS (1)
  1. METFORMIN HCL [Suspect]
     Route: 048

REACTIONS (3)
  - INTENTIONAL OVERDOSE [None]
  - METABOLIC ACIDOSIS [None]
  - RENAL FAILURE [None]
